FAERS Safety Report 25093461 (Version 1)
Quarter: 2025Q1

REPORT INFORMATION
  Report Type: Spontaneous
  Country: US (occurrence: US)
  Receive Date: 20250319
  Receipt Date: 20250319
  Transmission Date: 20250409
  Serious: No
  Sender: ROCHE
  Company Number: US-ROCHE-10000233523

PATIENT
  Sex: Female

DRUGS (9)
  1. XOLAIR PFS [Suspect]
     Active Substance: OMALIZUMAB
     Indication: Food allergy
     Route: 058
  2. XOLAIR PFS [Suspect]
     Active Substance: OMALIZUMAB
  3. Amlodipine B Tab [Concomitant]
  4. ATORVASTATIN [Concomitant]
     Active Substance: ATORVASTATIN
  5. FAMOTIDINE [Concomitant]
     Active Substance: FAMOTIDINE
  6. HYDROXYZINE [Concomitant]
     Active Substance: HYDROXYZINE HYDROCHLORIDE
  7. Naltrexone H [Concomitant]
  8. TELMISARTAN [Concomitant]
     Active Substance: TELMISARTAN
  9. Zyrtec aller [Concomitant]

REACTIONS (2)
  - Drug ineffective [Unknown]
  - Neuropathy peripheral [Unknown]
